FAERS Safety Report 8143844-5 (Version None)
Quarter: 2012Q1

REPORT INFORMATION
  Report Type: 
  Country: None (occurrence: None)
  Receive Date: 20120217
  Receipt Date: 20120207
  Transmission Date: 20120608
  Serious: Yes (Other)
  Sender: FDA-Public Use
  Company Number: DE-JNJFOC-20120205014

PATIENT
  Age: 61 Year
  Sex: Female

DRUGS (2)
  1. REMICADE [Suspect]
     Route: 042
     Dates: start: 20110526
  2. REMICADE [Suspect]
     Indication: PITYRIASIS RUBRA PILARIS
     Route: 042
     Dates: start: 20111206

REACTIONS (2)
  - LUPUS-LIKE SYNDROME [None]
  - MUSCULOSKELETAL PAIN [None]
